FAERS Safety Report 20633951 (Version 1)
Quarter: 2022Q1

REPORT INFORMATION
  Report Type: Report from Study
  Country: DE (occurrence: DE)
  Receive Date: 20220324
  Receipt Date: 20220324
  Transmission Date: 20220423
  Serious: Yes (Hospitalization, Other)
  Sender: FDA-Public Use
  Company Number: None

PATIENT
  Age: 68 Year
  Sex: Male
  Weight: 72 kg

DRUGS (24)
  1. ELOTUZUMAB [Suspect]
     Active Substance: ELOTUZUMAB
     Indication: Plasma cell myeloma
     Dosage: 1340 MILLIGRAM
     Route: 042
     Dates: start: 20190808, end: 20211227
  2. LENALIDOMIDE [Suspect]
     Active Substance: LENALIDOMIDE
     Indication: Plasma cell myeloma
     Dosage: 5 MILLIGRAM.
     Route: 048
     Dates: start: 20190808, end: 20220103
  3. LENALIDOMIDE [Suspect]
     Active Substance: LENALIDOMIDE
     Dosage: DRUG WAS WITHDRAWN ON 04-JAN-2022 AND RESTARTED ON 03-MAR-2022.
     Route: 048
     Dates: start: 20220303
  4. CARFILZOMIB [Suspect]
     Active Substance: CARFILZOMIB
     Indication: Plasma cell myeloma
     Dosage: 68.4 MILLIGRAM
     Route: 042
     Dates: start: 20190808, end: 20200207
  5. DEXAMETHASONE [Suspect]
     Active Substance: DEXAMETHASONE
     Indication: Plasma cell myeloma
     Dosage: 8 MILLIGRAM
     Route: 042
     Dates: start: 20190808, end: 20211227
  6. DEXAMETHASONE [Suspect]
     Active Substance: DEXAMETHASONE
     Route: 048
     Dates: end: 20210617
  7. DEXAMETHASONE [Suspect]
     Active Substance: DEXAMETHASONE
     Indication: Plasma cell myeloma
     Dosage: 28 MILLIGRAM
     Route: 048
     Dates: start: 20190808, end: 20211227
  8. METFORMIN [Concomitant]
     Active Substance: METFORMIN HYDROCHLORIDE
     Indication: Diabetes mellitus
     Dosage: 1000 MILLIGRAM, BID
     Route: 048
     Dates: start: 20200619
  9. ACYCLOVIR [Concomitant]
     Active Substance: ACYCLOVIR
     Indication: Infection prophylaxis
     Dosage: 400 MILLIGRAM, BID
     Route: 048
     Dates: start: 20200615
  10. RAMIPRIL [Concomitant]
     Active Substance: RAMIPRIL
     Indication: Hypertension
     Dosage: 10 MILLIGRAM, QD
     Route: 048
     Dates: start: 20210316, end: 20220107
  11. JANUVIA [Concomitant]
     Active Substance: SITAGLIPTIN PHOSPHATE
     Indication: Diabetes mellitus
     Dosage: 100 MILLIGRAM, QD
     Route: 048
     Dates: start: 202107, end: 20220105
  12. ZOMETA [Concomitant]
     Active Substance: ZOLEDRONIC ACID
     Indication: Prophylaxis
     Dosage: 4 MILLIGRAM, QMO
     Route: 042
     Dates: start: 20200702
  13. CALCILAC [CALCIUM LACTATE] [Concomitant]
     Indication: Prophylaxis
     Dosage: 1240 MILLIGRAM. KT QD
     Route: 048
     Dates: start: 20200709, end: 20220113
  14. FOLSAURE VITBALANS [Concomitant]
     Indication: Prophylaxis
     Dosage: 5 MILLIGRAM, QD
     Route: 048
     Dates: start: 20200724, end: 20220105
  15. VITAMIN B DUO [Concomitant]
     Indication: Prophylaxis
     Dosage: 1 TAB, QD
     Route: 048
     Dates: start: 20200724, end: 20220120
  16. VITAMIN B DUO [Concomitant]
     Dosage: 1 TABL BID
     Route: 048
     Dates: start: 20220121
  17. VITAMIN D NOS [Concomitant]
     Active Substance: VITAMIN D NOS
     Indication: Vitamin D deficiency
     Dosage: 20000 E EVERY OTHER WEEK
     Route: 048
     Dates: start: 20200806
  18. DIMETHINDENE [Concomitant]
     Active Substance: DIMETHINDENE
     Indication: Product used for unknown indication
     Dosage: 4 MILLIGRAM T1
     Route: 042
     Dates: start: 20200921
  19. RANITIDINE [Concomitant]
     Active Substance: RANITIDINE
     Indication: Product used for unknown indication
     Dosage: 50 MILLIGRAM T1
     Route: 042
     Dates: start: 20200921
  20. ACETAMINOPHEN [Concomitant]
     Active Substance: ACETAMINOPHEN
     Indication: Product used for unknown indication
     Dosage: 1000 MILLIGRAM T1
     Route: 048
     Dates: start: 20200921
  21. ASPIRIN [Concomitant]
     Active Substance: ASPIRIN
     Indication: Thrombosis prophylaxis
     Route: 048
     Dates: start: 20210315, end: 20220203
  22. FILGRASTIM [Concomitant]
     Active Substance: FILGRASTIM
     Indication: Neutropenia
     Dosage: 30 MIO IE BIW
     Route: 058
     Dates: start: 20210923, end: 20220105
  23. INSULIN HUMAN [Concomitant]
     Active Substance: INSULIN HUMAN
     Indication: Diabetes mellitus
     Dosage: 6 IE QD
     Route: 058
     Dates: start: 20220105, end: 20220106
  24. DIMENHYDRINATE [Concomitant]
     Active Substance: DIMENHYDRINATE
     Indication: Vomiting
     Dosage: 62 MILLIGRAM OO
     Route: 042
     Dates: start: 20220111, end: 20220111

REACTIONS (1)
  - Pneumocystis jirovecii pneumonia [Recovered/Resolved]

NARRATIVE: CASE EVENT DATE: 20220105
